FAERS Safety Report 11139119 (Version 1)
Quarter: 2015Q2

REPORT INFORMATION
  Report Type: Spontaneous
  Country: US (occurrence: US)
  Receive Date: 20150527
  Receipt Date: 20150527
  Transmission Date: 20150821
  Serious: No
  Sender: FDA-Public Use
  Company Number: US-MALLINCKRODT-T201404296

PATIENT
  Age: 44 Year
  Sex: Female

DRUGS (1)
  1. H.P. ACTHAR [Suspect]
     Active Substance: CORTICOTROPIN
     Indication: PROTEINURIA
     Dosage: UNK
     Route: 065
     Dates: start: 201409

REACTIONS (4)
  - Coeliac artery stenosis [Unknown]
  - Fatigue [Unknown]
  - Paraesthesia [Unknown]
  - Urine abnormality [Unknown]
